FAERS Safety Report 16035278 (Version 1)
Quarter: 2019Q1

REPORT INFORMATION
  Report Type: Spontaneous
  Country: US (occurrence: US)
  Receive Date: 20190305
  Receipt Date: 20190305
  Transmission Date: 20190418
  Serious: No
  Sender: FDA-Public Use
  Company Number: US-SA-2019SA059552

PATIENT

DRUGS (6)
  1. NASACORT [Suspect]
     Active Substance: TRIAMCINOLONE ACETONIDE
     Dosage: UNK
     Route: 065
  2. SOMA [Suspect]
     Active Substance: CARISOPRODOL
     Dosage: UNK
     Route: 065
  3. BENZYLPENICILLIN SODIUM/PROCAINE BENZYLPENICILLIN [Suspect]
     Active Substance: PENICILLIN G PROCAINE\PENICILLIN G SODIUM
     Dosage: UNK
     Route: 065
  4. LORATADINE. [Suspect]
     Active Substance: LORATADINE
     Dosage: UNK
     Route: 065
  5. PREGABALIN. [Suspect]
     Active Substance: PREGABALIN
     Dosage: ONE TAB TWICE DAILY AND TWO TABS AT BED TIME
     Route: 065
  6. ASPERCREME WITH LIDOCAINE [Suspect]
     Active Substance: LIDOCAINE
     Dosage: UNK
     Route: 065

REACTIONS (8)
  - Swelling [Unknown]
  - Hypersensitivity [Unknown]
  - Pyrexia [Unknown]
  - Jaundice [Unknown]
  - Dyspnoea [Unknown]
  - Urticaria [Unknown]
  - Pain [Unknown]
  - Rash [Unknown]
